FAERS Safety Report 8099619-9 (Version None)
Quarter: 2012Q1

REPORT INFORMATION
  Report Type: 
  Country: None (occurrence: None)
  Receive Date: 20120131
  Receipt Date: 20120125
  Transmission Date: 20120608
  Serious: Yes (Hospitalization, Other)
  Sender: FDA-Public Use
  Company Number: CH-PFIZER INC-2012020429

PATIENT
  Age: 69 Year
  Sex: Female

DRUGS (10)
  1. ENTUMIN [Concomitant]
     Dosage: 20 MG, 1X/DAY
     Route: 048
  2. NEURONTIN [Concomitant]
     Dosage: 300 MG, 3X/DAY
     Route: 048
     Dates: start: 20110501
  3. TEGRETOL [Interacting]
     Dosage: 200 MG, 2X/DAY
     Route: 048
     Dates: start: 20110504, end: 20110603
  4. MOVIPREP [Concomitant]
     Dosage: 1 DF, 1X/DAY
     Route: 048
  5. VALPROATE SODIUM [Interacting]
     Dosage: 300 MG, 2X/DAY
     Route: 048
     Dates: start: 20090101
  6. ASPIRIN [Concomitant]
     Dosage: 250 MG, 1X/DAY
     Route: 048
  7. DIOVAN [Concomitant]
     Dosage: 80 MG, 2X/DAY
     Route: 048
  8. ZOLOFT [Suspect]
     Dosage: 50 MG, 1X/DAY
     Route: 048
  9. ATORVASTATIN CALCIUM [Concomitant]
     Dosage: 20 MG, 1X/DAY
     Route: 048
  10. TRAZODONE HCL [Concomitant]
     Dosage: 50 MG, 1X/DAY
     Route: 048

REACTIONS (5)
  - HYPERAMMONAEMIA [None]
  - HYPOKALAEMIA [None]
  - DRUG INTERACTION [None]
  - HYPONATRAEMIA [None]
  - TOXICITY TO VARIOUS AGENTS [None]
